FAERS Safety Report 6915862 (Version 4)
Quarter: 2013Q4

REPORT INFORMATION
  Report Type: Spontaneous
  Country: BE (occurrence: None)
  Receive Date: 20090206
  Receipt Date: 20131206
  Transmission Date: 20140711
  Serious: Yes (Other)
  Sender: FDA-Public Use
  Company Number: JPI-P-005992

PATIENT
  Age: 50 Year
  Sex: Male

DRUGS (3)
  1. XYREM [Suspect]
     Indication: NARCOLEPSY
     Dosage: 9 GM (4.5 GM, 2 IN 1 D), ORAL
     Route: 048
     Dates: start: 20080505
  2. XYREM [Suspect]
     Indication: CATAPLEXY
     Dosage: 9 GM (4.5 GM, 2 IN 1 D), ORAL
     Route: 048
     Dates: start: 20080505
  3. METHYLPHENIDATE HYDROCHLORIDE [Concomitant]

REACTIONS (5)
  - Aggression [None]
  - Rapid eye movements sleep abnormal [None]
  - Somnolence [None]
  - Sleep talking [None]
  - Agitation [None]
